FAERS Safety Report 20257368 (Version 1)
Quarter: 2021Q4

REPORT INFORMATION
  Report Type: Report from Study
  Country: DE (occurrence: DE)
  Receive Date: 20211230
  Receipt Date: 20211230
  Transmission Date: 20220303
  Serious: Yes (Other)
  Sender: FDA-Public Use
  Company Number: None

PATIENT
  Age: 73 Year
  Sex: Male
  Weight: 84 kg

DRUGS (10)
  1. FLUOROURACIL [Suspect]
     Active Substance: FLUOROURACIL
     Indication: Colorectal cancer metastatic
     Dosage: 1200 MILLIGRAM
     Route: 042
     Dates: start: 20170911, end: 2017
  2. FLUOROURACIL [Suspect]
     Active Substance: FLUOROURACIL
     Dosage: 600 MILLIGRAM
     Route: 040
     Dates: start: 20171113
  3. FLUOROURACIL [Suspect]
     Active Substance: FLUOROURACIL
     Dosage: 900 MILLIGRAM
     Route: 042
     Dates: start: 20171113
  4. FLUOROURACIL [Suspect]
     Active Substance: FLUOROURACIL
     Dosage: 800 MILLIGRAM
     Route: 040
     Dates: start: 20170911, end: 2017
  5. LEUCOVORIN [Suspect]
     Active Substance: LEUCOVORIN
     Indication: Colorectal cancer metastatic
     Dosage: 400 MILLIGRAM
     Route: 065
     Dates: start: 20170911, end: 2017
  6. LEUCOVORIN [Suspect]
     Active Substance: LEUCOVORIN
     Dosage: 300 MILLIGRAM
     Route: 065
     Dates: start: 20171113
  7. ONIVYDE [Suspect]
     Active Substance: IRINOTECAN HYDROCHLORIDE
     Indication: Colorectal cancer metastatic
     Dosage: 160 MILLIGRAM
     Route: 065
     Dates: start: 20170911, end: 2017
  8. ONIVYDE [Suspect]
     Active Substance: IRINOTECAN HYDROCHLORIDE
     Indication: Off label use
     Dosage: 120 MILLIGRAM
     Route: 065
     Dates: start: 20171113
  9. PANITUMUMAB [Suspect]
     Active Substance: PANITUMUMAB
     Indication: Colorectal cancer metastatic
     Dosage: 520 MILLIGRAM
     Route: 042
     Dates: start: 20170911, end: 2017
  10. PANITUMUMAB [Suspect]
     Active Substance: PANITUMUMAB
     Dosage: 490 MILLIGRAM
     Route: 042
     Dates: start: 20171113

REACTIONS (2)
  - Ileus [Unknown]
  - Off label use [Recovered/Resolved]

NARRATIVE: CASE EVENT DATE: 20170911
